FAERS Safety Report 7824689-X (Version None)
Quarter: 2011Q4

REPORT INFORMATION
  Report Type: 
  Country: None (occurrence: None)
  Receive Date: 20111019
  Receipt Date: 20111006
  Transmission Date: 20120403
  Serious: Yes (Other)
  Sender: FDA-Public Use
  Company Number: PHHY2011FR66555

PATIENT
  Sex: Male
  Weight: 75 kg

DRUGS (4)
  1. ONBREZ [Suspect]
     Indication: BRONCHITIS CHRONIC
     Dosage: 1 DF, QD
     Dates: start: 20110501, end: 20110502
  2. ACETAMINOPHEN [Concomitant]
     Dosage: 3 DF, QD
  3. VENTOLIN [Concomitant]
     Dosage: 2 DF, QD
  4. MYOLASTAN [Concomitant]
     Dosage: 1 DF, QD

REACTIONS (5)
  - DYSPNOEA [None]
  - MACULE [None]
  - ANGIOEDEMA [None]
  - URTICARIA [None]
  - PRURITUS [None]
